FAERS Safety Report 24084612 (Version 1)
Quarter: 2024Q3

REPORT INFORMATION
  Report Type: Spontaneous
  Country: JP (occurrence: JP)
  Receive Date: 20240712
  Receipt Date: 20240712
  Transmission Date: 20241017
  Serious: No
  Sender: PIERRE FABRE MEDICAMENT
  Company Number: JP-PFM-2022-00453

PATIENT
  Age: 10 Month
  Sex: Male

DRUGS (3)
  1. PROPRANOLOL HYDROCHLORIDE [Suspect]
     Active Substance: PROPRANOLOL HYDROCHLORIDE
     Indication: Infantile haemangioma
     Dosage: 1 MG/KG, PER DAY
     Route: 048
     Dates: start: 20180305, end: 20180318
  2. PROPRANOLOL HYDROCHLORIDE [Suspect]
     Active Substance: PROPRANOLOL HYDROCHLORIDE
     Dosage: 2 MG/KG, PER DAY
     Route: 048
     Dates: start: 20180319, end: 20180401
  3. PROPRANOLOL HYDROCHLORIDE [Suspect]
     Active Substance: PROPRANOLOL HYDROCHLORIDE
     Dosage: 3 MG/KG, PER DAY
     Route: 048
     Dates: start: 20180402, end: 20180913

REACTIONS (1)
  - Rash [Recovered/Resolved]

NARRATIVE: CASE EVENT DATE: 20180910
